FAERS Safety Report 10406823 (Version 1)
Quarter: 2014Q1

REPORT INFORMATION
  Report Type: Spontaneous
  Country: US (occurrence: None)
  Receive Date: 20140228
  Receipt Date: 20140228
  Transmission Date: 20141002
  Serious: No
  Sender: FDA-Public Use
  Company Number: 224982LEO

PATIENT
  Sex: Female

DRUGS (3)
  1. PICATO [Suspect]
     Indication: PRECANCEROUS CELLS PRESENT
     Route: 061
     Dates: start: 20131114
  2. TRAZODONE [Concomitant]
  3. NEXIUM (ESOMEPRAZOLE SODIUM) [Concomitant]

REACTIONS (5)
  - Application site vesicles [None]
  - Application site pruritus [None]
  - Application site erythema [None]
  - Application site pain [None]
  - Incorrect drug administration duration [None]
